FAERS Safety Report 7454607-8 (Version None)
Quarter: 2011Q2

REPORT INFORMATION
  Report Type: 
  Country: None (occurrence: None)
  Receive Date: 20110425
  Receipt Date: 20110411
  Transmission Date: 20111010
  Serious: Yes (Death)
  Sender: FDA-Public Use
  Company Number: US-2011-10172

PATIENT
  Age: 65 Year
  Sex: Male

DRUGS (17)
  1. URSO 250 [Concomitant]
  2. SANDIMMUNE [Suspect]
     Indication: IMMUNOSUPPRESSION
     Dosage: 100 MG MILLIGRAM(S), BID, INTRAVENOUS
     Route: 042
     Dates: start: 20071108, end: 20071205
  3. NEUTROGIN (LENOGRASTIM) [Concomitant]
  4. CELLCEPT [Concomitant]
  5. FAMOTIDINE [Concomitant]
  6. BUSULFEX [Suspect]
     Indication: STEM CELL TRANSPLANT
     Dosage: 45 MG MILLIGRAM(S), DROP; 45 MG MILLIGRAM(S), QID
     Dates: start: 20071104, end: 20071107
  7. ZOVIRAX [Concomitant]
  8. FLUDARA [Concomitant]
  9. HIBON (RIBOFLAVIN TETRABUTYRATE) [Concomitant]
  10. FILGRASTIM (FILGRASTIM) [Concomitant]
  11. G-CSF-PRIMING-ARA-C (G-CSF-PRIMING-ARA-C) [Concomitant]
  12. DIFLUCAN [Concomitant]
  13. EPADEL (EICOSAPENTAENOIC ACID ETHYL ESTER) [Concomitant]
  14. NEUQUINON (UBIDECARENONE) [Concomitant]
  15. MAXIPIME [Concomitant]
  16. OMEGACIN (BIAPENEM) [Concomitant]
  17. SOLDACTONE (POTASSIUM CANRENOATE) [Concomitant]

REACTIONS (6)
  - GENERAL PHYSICAL HEALTH DETERIORATION [None]
  - MELAENA [None]
  - BLOOD PRESSURE DECREASED [None]
  - THROMBOTIC MICROANGIOPATHY [None]
  - VENOOCCLUSIVE LIVER DISEASE [None]
  - ILEUS PARALYTIC [None]
